FAERS Safety Report 11329250 (Version 1)
Quarter: 2015Q3

REPORT INFORMATION
  Report Type: Report from Study
  Country: BR (occurrence: BR)
  Receive Date: 20150803
  Receipt Date: 20150803
  Transmission Date: 20151125
  Serious: Yes (Hospitalization)
  Sender: FDA-Public Use
  Company Number: BR-ORION CORPORATION ORION PHARMA-ENTC2015-0412

PATIENT
  Sex: Male
  Weight: 80 kg

DRUGS (3)
  1. STALEVO [Suspect]
     Active Substance: CARBIDOPA\ENTACAPONE\LEVODOPA
     Dosage: STRENGTH:50/12.5/200 MG
     Route: 065
  2. STALEVO [Suspect]
     Active Substance: CARBIDOPA\ENTACAPONE\LEVODOPA
     Indication: PARKINSON^S DISEASE
     Dosage: STRENGTH: 50/12.5/200 MG
     Route: 065
  3. STALEVO [Suspect]
     Active Substance: CARBIDOPA\ENTACAPONE\LEVODOPA
     Dosage: STRENGTH: 100/25/200 MG
     Route: 065
     Dates: start: 201503

REACTIONS (6)
  - Tremor [Recovering/Resolving]
  - Fall [Unknown]
  - Thrombosis [Unknown]
  - Cerebrovascular accident [Unknown]
  - Head injury [Unknown]
  - Malaise [Unknown]
